FAERS Safety Report 5737380-0 (Version None)
Quarter: 2008Q2

REPORT INFORMATION
  Report Type: 
  Country: None (occurrence: None)
  Receive Date: 20080514
  Receipt Date: 20080122
  Transmission Date: 20081010
  Serious: No
  Sender: FDA-Public Use
  Company Number: US-BRISTOL-MYERS SQUIBB COMPANY-14049316

PATIENT
  Age: 52 Year
  Sex: Female
  Weight: 54 kg

DRUGS (4)
  1. IXEMPRA KIT [Suspect]
     Indication: BREAST CANCER METASTATIC
     Dates: start: 20080117
  2. AROMASIN [Concomitant]
  3. AREDIA [Concomitant]
  4. VITAMINS [Concomitant]

REACTIONS (5)
  - DIARRHOEA [None]
  - EPISTAXIS [None]
  - GINGIVAL BLEEDING [None]
  - PYREXIA [None]
  - RECTAL DISCHARGE [None]
